FAERS Safety Report 6130638-5 (Version None)
Quarter: 2009Q1

REPORT INFORMATION
  Report Type: 
  Country: None (occurrence: None)
  Receive Date: 20090325
  Receipt Date: 20090317
  Transmission Date: 20090719
  Serious: Yes (Other)
  Sender: FDA-Public Use
  Company Number: GB-TEVA-188177ISR

PATIENT
  Age: 86 Year
  Sex: Female
  Weight: 60 kg

DRUGS (10)
  1. AZILECT [Suspect]
     Route: 048
     Dates: start: 20090303, end: 20090306
  2. WARFARIN SODIUM [Interacting]
  3. CITALOPRAM HYDROBROMIDE [Concomitant]
  4. DIGOXIN [Concomitant]
  5. LISINOPRIL [Concomitant]
  6. OMEPRAZOLE [Concomitant]
  7. PARACETAMOL [Concomitant]
  8. ROPINIROLE [Concomitant]
  9. SIMVASTATIN [Concomitant]
  10. SINEMET [Concomitant]

REACTIONS (3)
  - DRUG INTERACTION [None]
  - INTERNATIONAL NORMALISED RATIO INCREASED [None]
  - TREMOR [None]
